FAERS Safety Report 7101631-0 (Version None)
Quarter: 2010Q4

REPORT INFORMATION
  Report Type: 
  Country: None (occurrence: None)
  Receive Date: 20101115
  Receipt Date: 20101104
  Transmission Date: 20110411
  Serious: Yes (Hospitalization)
  Sender: FDA-Public Use
  Company Number: GB-JNJFOC-20090301034

PATIENT
  Age: 19 Year
  Sex: Male

DRUGS (2)
  1. TOPIRAMATE [Suspect]
     Indication: EPILEPSY
     Route: 048
  2. METFORMIN HCL [Concomitant]
     Indication: ILL-DEFINED DISORDER
     Route: 065

REACTIONS (8)
  - AGGRESSION [None]
  - DELUSION [None]
  - EMOTIONAL DISTRESS [None]
  - HALLUCINATION, AUDITORY [None]
  - MEMORY IMPAIRMENT [None]
  - PSYCHOTIC DISORDER [None]
  - THINKING ABNORMAL [None]
  - UNRESPONSIVE TO STIMULI [None]
